FAERS Safety Report 7067482-0 (Version None)
Quarter: 2010Q4

REPORT INFORMATION
  Report Type: 
  Country: None (occurrence: None)
  Receive Date: 20101007
  Receipt Date: 20100927
  Transmission Date: 20110411
  Serious: Yes (Other)
  Sender: FDA-Public Use
  Company Number: AEUSA201000346

PATIENT
  Age: 83 Year
  Sex: Female
  Weight: 68.4932 kg

DRUGS (5)
  1. PROLASTIN-C [Suspect]
     Indication: ALPHA-1 ANTI-TRYPSIN DEFICIENCY
     Dosage: 60 MG; QW; IV
     Route: 042
     Dates: start: 20100501
  2. ALBUTEROL [Concomitant]
  3. PROVENTIL /00139501/ [Concomitant]
  4. INSULIN [Concomitant]
  5. OXYGEN [Concomitant]

REACTIONS (4)
  - BLINDNESS TRANSIENT [None]
  - BLINDNESS UNILATERAL [None]
  - VISION BLURRED [None]
  - VISUAL IMPAIRMENT [None]
